FAERS Safety Report 5286463-0 (Version None)
Quarter: 2007Q1

REPORT INFORMATION
  Report Type: 
  Country: None (occurrence: None)
  Receive Date: 20070116
  Receipt Date: 20061024
  Transmission Date: 20070707
  Serious: No
  Sender: FDA-Public Use
  Company Number: 2006SP003808

PATIENT
  Age: 45 Year
  Sex: Female
  Weight: 47.1741 kg

DRUGS (5)
  1. LUNESTA [Suspect]
     Indication: INSOMNIA
     Dosage: 2 MG;1X ; ORAL
     Route: 048
     Dates: start: 20061015, end: 20061015
  2. INTERFERON [Concomitant]
  3. NEURONTIN [Concomitant]
  4. TRAMADOL HCL [Concomitant]
  5. CLONAZEPAM [Concomitant]

REACTIONS (1)
  - INSOMNIA [None]
